FAERS Safety Report 9251254 (Version 1)
Quarter: 2013Q1

REPORT INFORMATION
  Report Type: Spontaneous
  Country: US (occurrence: None)
  Receive Date: 20130305
  Receipt Date: 20130305
  Transmission Date: 20140127
  Serious: Yes (Hospitalization)
  Sender: FDA-Public Use
  Company Number: 163-21880-12042309

PATIENT
  Age: 64 Year
  Sex: Male
  Weight: 66.68 kg

DRUGS (15)
  1. REVLIMID [Suspect]
     Indication: PLASMA CELL MYELOMA
     Dosage: 25MG, 14 IN 21 D, PO
     Route: 048
     Dates: start: 20120202, end: 20120530
  2. ASPIRIN (ACETYLSALICYLIC ACID) [Concomitant]
  3. BYSTOLIC (NEBIVOLOL HYDROCHLORIDE) [Concomitant]
  4. VELCADE (BORTEZOMIB) [Concomitant]
  5. COUMADIN (WARFARIN) [Concomitant]
  6. DEXAMETHASONE (DEXAMETHASONE) [Concomitant]
  7. LISINOPRIL (LISINOPRIL) [Concomitant]
  8. VITAMINS [Concomitant]
  9. PHENERGAN (PROMETHAZINE) [Concomitant]
  10. PROTONIX (UNKNOWN) [Concomitant]
  11. LOVENOX (HEPARIN-FRACTION, SODIUM SALT) [Concomitant]
  12. ACYCLOVIR (ACICLOVIR) (ACICLOVIR) [Concomitant]
  13. ENOXAPARIN (ENOXAPARIN) [Concomitant]
  14. MAGNESIUM OXIDE (MAGNESIUM OXIDE) [Concomitant]
  15. IMODIUM (LOPERAMIDE) [Concomitant]

REACTIONS (2)
  - Pulmonary embolism [None]
  - Thrombosis [None]
